FAERS Safety Report 9799875 (Version 3)
Quarter: 2014Q1

REPORT INFORMATION
  Report Type: Spontaneous
  Country: US (occurrence: US)
  Receive Date: 20140106
  Receipt Date: 20140127
  Transmission Date: 20141002
  Serious: Yes (Hospitalization)
  Sender: FDA-Public Use
  Company Number: US-GLAXOSMITHKLINE-A1055433A

PATIENT
  Age: 32 Year
  Sex: Male

DRUGS (1)
  1. FLONASE [Suspect]
     Indication: RESPIRATORY DISORDER
     Dosage: 50MCG UNKNOWN
     Route: 045
     Dates: start: 20100720

REACTIONS (1)
  - Malaise [Unknown]
